FAERS Safety Report 8849974 (Version 1)
Quarter: 2012Q4

REPORT INFORMATION
  Report Type: Report from Study
  Country: CA (occurrence: CA)
  Receive Date: 20121019
  Receipt Date: 20121019
  Transmission Date: 20130627
  Serious: Yes (Other)
  Sender: FDA-Public Use
  Company Number: CA-ROCHE-1146832

PATIENT
  Sex: Male
  Weight: 94.89 kg

DRUGS (13)
  1. TOCILIZUMAB [Suspect]
     Indication: RHEUMATOID ARTHRITIS
     Route: 042
     Dates: start: 20120608, end: 20120904
  2. LUMIGAN [Concomitant]
     Route: 065
  3. ELAVIL [Concomitant]
     Route: 065
  4. RAMIPRIL [Concomitant]
     Route: 065
  5. PREDNISONE [Concomitant]
     Route: 065
  6. LIPITOR [Concomitant]
     Route: 065
  7. BISOPROLOL [Concomitant]
     Route: 065
  8. ALENDRONATE [Concomitant]
     Route: 065
  9. CENTRUM SELECT 50+ [Concomitant]
     Route: 065
  10. VITAMIN D [Concomitant]
     Route: 065
  11. ASA [Concomitant]
     Route: 065
  12. OMEPRAZOLE [Concomitant]
     Route: 065
  13. METFORMIN [Concomitant]
     Route: 065

REACTIONS (2)
  - Hepatic enzyme increased [Not Recovered/Not Resolved]
  - Rheumatoid arthritis [Unknown]
